FAERS Safety Report 6101574-5 (Version None)
Quarter: 2009Q1

REPORT INFORMATION
  Report Type: 
  Country: None (occurrence: None)
  Receive Date: 20090303
  Receipt Date: 20090303
  Transmission Date: 20090719
  Serious: No
  Sender: FDA-Public Use
  Company Number: None

PATIENT
  Age: 57 Year
  Sex: Male
  Weight: 90.7194 kg

DRUGS (1)
  1. HYDRIN-2 [Suspect]
     Indication: PROSTATOMEGALY
     Dates: start: 20061115, end: 20061222

REACTIONS (6)
  - AKINESIA [None]
  - BALANCE DISORDER [None]
  - CHRONIC FATIGUE SYNDROME [None]
  - DIZZINESS [None]
  - HYPOTENSION [None]
  - SYNCOPE [None]
